FAERS Safety Report 7182957-1 (Version None)
Quarter: 2010Q4

REPORT INFORMATION
  Report Type: 
  Country: None (occurrence: None)
  Receive Date: 20101222
  Receipt Date: 20101209
  Transmission Date: 20110411
  Serious: Yes (Other)
  Sender: FDA-Public Use
  Company Number: DE-JNJFOC-20101103899

PATIENT
  Sex: Female
  Weight: 57 kg

DRUGS (2)
  1. PALEXIA RETARD [Suspect]
     Indication: PAIN
     Route: 048
  2. TRAMADOL HCL [Concomitant]

REACTIONS (7)
  - AGITATION [None]
  - ANXIETY [None]
  - INSOMNIA [None]
  - NIGHTMARE [None]
  - PANIC DISORDER [None]
  - PSYCHOTIC DISORDER [None]
  - RESTLESSNESS [None]
